FAERS Safety Report 18702737 (Version 4)
Quarter: 2021Q2

REPORT INFORMATION
  Report Type: Spontaneous
  Country: US (occurrence: US)
  Receive Date: 20210105
  Receipt Date: 20210609
  Transmission Date: 20210717
  Serious: Yes (Other)
  Sender: FDA-Public Use
  Company Number: US-TEVA-2020-US-1864954

PATIENT
  Age: 29 Year
  Sex: Female

DRUGS (5)
  1. TREPROSTINIL MDV TEVA [Suspect]
     Active Substance: TREPROSTINIL
     Dosage: 30NG/KG/MIN
     Route: 042
     Dates: start: 20210208, end: 202103
  2. TREPROSTINIL MDV TEVA [Suspect]
     Active Substance: TREPROSTINIL
     Indication: PULMONARY ARTERIAL HYPERTENSION
     Dosage: 19NG/KG/MIN AT A FREQUENCY OF 45ML/24HR
     Route: 042
     Dates: start: 20201209
  3. SILDENAFIL. [Suspect]
     Active Substance: SILDENAFIL
     Route: 065
     Dates: end: 202103
  4. SILDENAFIL. [Suspect]
     Active Substance: SILDENAFIL
  5. AMBRISENTAN [Suspect]
     Active Substance: AMBRISENTAN
     Route: 065
     Dates: end: 202103

REACTIONS (2)
  - Arthralgia [Unknown]
  - Lung transplant [Unknown]

NARRATIVE: CASE EVENT DATE: 202103
